FAERS Safety Report 6575037-7 (Version None)
Quarter: 2010Q1

REPORT INFORMATION
  Report Type: 
  Country: None (occurrence: None)
  Receive Date: 20100209
  Receipt Date: 20100126
  Transmission Date: 20100710
  Serious: Yes (Hospitalization, Other)
  Sender: FDA-Public Use
  Company Number: JP-BAYER-200912393BYL

PATIENT
  Age: 56 Year
  Sex: Female
  Weight: 45 kg

DRUGS (62)
  1. NEXAVAR [Suspect]
     Indication: RENAL CELL CARCINOMA
     Dosage: UNIT DOSE: 200 MG
     Route: 048
     Dates: start: 20080729, end: 20080807
  2. NEXAVAR [Suspect]
     Dosage: UNIT DOSE: 200 MG
     Route: 048
     Dates: start: 20080808, end: 20090710
  3. NEXAVAR [Suspect]
     Dosage: UNIT DOSE: 200 MG
     Route: 048
     Dates: start: 20090724
  4. OXYCONTIN [Concomitant]
     Route: 048
     Dates: start: 20090226
  5. OXYCONTIN [Concomitant]
     Route: 048
     Dates: start: 20080917, end: 20081229
  6. OXYCONTIN [Concomitant]
     Route: 048
     Dates: start: 20080812, end: 20080916
  7. OXYCONTIN [Concomitant]
     Dosage: BEFORE ADMINISTRATION
     Route: 048
     Dates: start: 20080101, end: 20080811
  8. OXINORM [Concomitant]
     Dosage: BEFORE ADMINISTRATION
     Route: 048
     Dates: start: 20080101, end: 20090309
  9. OXINORM [Concomitant]
     Route: 048
     Dates: start: 20090310
  10. FUROSEMIDE [Concomitant]
     Dosage: BEFORE ADMINISTRATION
     Route: 048
     Dates: start: 20080101, end: 20081027
  11. MAGNESIUM OXIDE [Concomitant]
     Route: 048
     Dates: start: 20090522
  12. MAGNESIUM OXIDE [Concomitant]
     Route: 048
     Dates: start: 20090201, end: 20090409
  13. MAGNESIUM OXIDE [Concomitant]
     Dosage: BEFORE ADMINISTRATION
     Route: 048
     Dates: start: 20080101, end: 20081208
  14. MAGNESIUM OXIDE [Concomitant]
     Route: 048
     Dates: start: 20081209, end: 20090131
  15. MAGNESIUM OXIDE [Concomitant]
     Route: 048
     Dates: start: 20090410
  16. LOXONIN [Concomitant]
     Route: 048
     Dates: start: 20081205
  17. LOXONIN [Concomitant]
     Dosage: BEFORE ADMINSITRATION
     Route: 048
     Dates: start: 20080101, end: 20081204
  18. TAGAMET [Concomitant]
     Dosage: BEFORE ADMINISTRATION
     Route: 048
     Dates: start: 20080101
  19. GABAPENTIN [Concomitant]
     Route: 048
     Dates: start: 20090126
  20. GABAPENTIN [Concomitant]
     Route: 048
     Dates: start: 20080930
  21. GABAPENTIN [Concomitant]
     Route: 048
     Dates: start: 20081014, end: 20090125
  22. VOLTAREN [Concomitant]
     Route: 048
     Dates: start: 20081125
  23. TK-FT NOS [Concomitant]
     Dosage: STUDY
     Route: 055
     Dates: start: 20090107, end: 20090109
  24. TK-FT NOS [Concomitant]
     Dosage: STUDY
     Route: 055
     Dates: start: 20090113, end: 20090116
  25. TK-FT NOS [Concomitant]
     Dosage: STUDY
     Route: 055
     Dates: start: 20090119, end: 20090123
  26. MAGNEVIST [Concomitant]
     Indication: NUCLEAR MAGNETIC RESONANCE IMAGING
     Route: 042
     Dates: start: 20090107, end: 20090107
  27. RINDERON [Concomitant]
     Route: 048
     Dates: start: 20090626
  28. RINDERON [Concomitant]
     Route: 048
     Dates: start: 20090128, end: 20090207
  29. RINDERON [Concomitant]
     Route: 048
     Dates: start: 20090215
  30. XYLOCAINE [Concomitant]
     Indication: NERVE BLOCK
     Route: 029
     Dates: start: 20090129, end: 20090129
  31. XYLOCAINE [Concomitant]
     Route: 029
     Dates: start: 20090210, end: 20090210
  32. XYLOCAINE [Concomitant]
     Route: 029
     Dates: start: 20090220, end: 20090220
  33. XYLOCAINE [Concomitant]
     Route: 029
     Dates: start: 20090306, end: 20090306
  34. XYLOCAINE [Concomitant]
     Dosage: UNIT DOSE: 1 %
     Route: 029
     Dates: start: 20090731, end: 20090731
  35. XYLOCAINE [Concomitant]
     Route: 029
     Dates: start: 20090410, end: 20090410
  36. XYLOCAINE [Concomitant]
     Dosage: UNIT DOSE: 1 %
     Route: 029
     Dates: start: 20090710, end: 20090710
  37. XYLOCAINE [Concomitant]
     Route: 029
     Dates: start: 20090213, end: 20090213
  38. XYLOCAINE [Concomitant]
     Route: 029
     Dates: start: 20090310, end: 20090310
  39. XYLOCAINE [Concomitant]
     Dosage: UNIT DOSE: 1 %
     Route: 029
     Dates: start: 20090508, end: 20090508
  40. XYLOCAINE [Concomitant]
     Dosage: UNIT DOSE: 1 %
     Route: 029
     Dates: start: 20090612, end: 20090612
  41. XYLOCAINE [Concomitant]
     Dosage: UNIT DOSE: 1 %
     Route: 029
     Dates: start: 20090626, end: 20090626
  42. XYLOCAINE [Concomitant]
     Route: 029
     Dates: start: 20090421, end: 20090421
  43. XYLOCAINE [Concomitant]
     Dosage: UNIT DOSE: 1 %
     Route: 029
     Dates: start: 20090522, end: 20090522
  44. DEXART [Concomitant]
     Indication: NERVE BLOCK
     Route: 029
     Dates: start: 20090210, end: 20090210
  45. DEXART [Concomitant]
     Route: 029
     Dates: start: 20090129, end: 20090129
  46. ZOMETA [Concomitant]
     Route: 041
     Dates: start: 20090203, end: 20090203
  47. SEISHOKU [Concomitant]
     Route: 041
     Dates: start: 20090203, end: 20090203
  48. KETALAR [Concomitant]
     Route: 065
     Dates: start: 20090213, end: 20090214
  49. DECADRON [Concomitant]
     Indication: NERVE BLOCK
     Route: 029
     Dates: start: 20090220, end: 20090220
  50. DECADRON [Concomitant]
     Route: 029
     Dates: start: 20090306, end: 20090306
  51. DECADRON [Concomitant]
     Route: 029
     Dates: start: 20090310, end: 20090310
  52. DECADRON [Concomitant]
     Route: 029
     Dates: start: 20090410, end: 20090410
  53. DECADRON [Concomitant]
     Route: 029
     Dates: start: 20090421, end: 20090421
  54. DECADRON [Concomitant]
     Route: 029
     Dates: start: 20090508, end: 20090508
  55. DECADRON [Concomitant]
     Route: 029
     Dates: start: 20090522, end: 20090522
  56. DECADRON [Concomitant]
     Route: 029
     Dates: start: 20090612, end: 20090612
  57. DECADRON [Concomitant]
     Route: 029
     Dates: start: 20090710, end: 20090710
  58. DECADRON [Concomitant]
     Route: 029
     Dates: start: 20090731, end: 20090731
  59. DECADRON [Concomitant]
     Route: 029
     Dates: start: 20090213, end: 20090213
  60. MARZULENE S [Concomitant]
     Indication: ABDOMINAL DISCOMFORT
     Route: 048
     Dates: start: 20090124, end: 20090124
  61. MARZULENE S [Concomitant]
     Route: 048
     Dates: start: 20090128, end: 20090207
  62. CEROCRAL [Concomitant]
     Route: 048
     Dates: start: 20090310, end: 20090330

REACTIONS (13)
  - ABDOMINAL DISCOMFORT [None]
  - ALOPECIA [None]
  - ANAEMIA [None]
  - BACK PAIN [None]
  - COORDINATION ABNORMAL [None]
  - ERYTHEMA [None]
  - HEADACHE [None]
  - HYPOAESTHESIA [None]
  - NEURALGIA [None]
  - PAIN IN EXTREMITY [None]
  - PALMAR-PLANTAR ERYTHRODYSAESTHESIA SYNDROME [None]
  - VOMITING [None]
  - YELLOW SKIN [None]
